FAERS Safety Report 5612666-9 (Version None)
Quarter: 2008Q1

REPORT INFORMATION
  Report Type: 
  Country: None (occurrence: None)
  Receive Date: 20080204
  Receipt Date: 20080123
  Transmission Date: 20080703
  Serious: Yes (Death, Hospitalization)
  Sender: FDA-Public Use
  Company Number: CN-JNJFOC-20080105470

PATIENT
  Sex: Female
  Weight: 42 kg

DRUGS (2)
  1. ITRACONAZOLE [Suspect]
     Indication: PULMONARY MYCOSIS
     Route: 042
  2. ITRACONAZOLE [Suspect]
     Route: 048

REACTIONS (5)
  - ABDOMINAL DISTENSION [None]
  - DECREASED APPETITE [None]
  - LIVER FUNCTION TEST ABNORMAL [None]
  - OEDEMA PERIPHERAL [None]
  - RESPIRATORY FAILURE [None]
